FAERS Safety Report 9037891 (Version 2)
Quarter: 2013Q2

REPORT INFORMATION
  Report Type: Spontaneous
  Country: US (occurrence: US)
  Receive Date: 20130129
  Receipt Date: 20130618
  Transmission Date: 20140414
  Serious: Yes (Life-Threatening)
  Sender: FDA-Public Use
  Company Number: US-BAYER-2013-011384

PATIENT
  Age: 42 Year
  Sex: Female
  Weight: 70.3 kg

DRUGS (6)
  1. YAZ [Suspect]
     Indication: MENSTRUAL CYCLE MANAGEMENT
     Dosage: UNK
     Dates: start: 200611, end: 200806
  2. YAZ [Suspect]
     Indication: MENSTRUAL CYCLE MANAGEMENT
     Dosage: UNK
     Dates: start: 200910, end: 201104
  3. SULFAMETHOXAZOLE W/TRIMETHOPRIM [Concomitant]
     Dosage: 800/160 MG
  4. ALEVE [Concomitant]
     Dosage: 220 MG, UNK
  5. MOTRIN [Concomitant]
     Dosage: 200, 400 MG
  6. VITAMIN B COMPLEX WITH C [Concomitant]

REACTIONS (7)
  - Deep vein thrombosis [None]
  - Pain [None]
  - Anxiety [None]
  - Anhedonia [None]
  - Fear of disease [None]
  - Pain in extremity [None]
  - Oedema peripheral [None]
